FAERS Safety Report 7608536-7 (Version None)
Quarter: 2011Q3

REPORT INFORMATION
  Report Type: 
  Country: None (occurrence: None)
  Receive Date: 20110714
  Receipt Date: 20110630
  Transmission Date: 20111222
  Serious: Yes (Other)
  Sender: FDA-Public Use
  Company Number: PHHY2011US58750

PATIENT
  Age: 67 Year
  Sex: Female

DRUGS (2)
  1. FOSAMAX [Concomitant]
     Indication: OSTEOPENIA
     Dosage: FOR 5 YEARS
  2. RECLAST [Suspect]
     Indication: OSTEOPOROSIS
     Route: 042

REACTIONS (9)
  - SYSTEMIC LUPUS ERYTHEMATOSUS [None]
  - IMMUNE SYSTEM DISORDER [None]
  - BONE FRAGMENTATION [None]
  - HAEMORRHAGE [None]
  - PAIN IN JAW [None]
  - ERYTHEMA [None]
  - OSTEONECROSIS OF JAW [None]
  - EXPOSED BONE IN JAW [None]
  - WOUND DEHISCENCE [None]
